FAERS Safety Report 14668990 (Version 1)
Quarter: 2018Q1

REPORT INFORMATION
  Report Type: Spontaneous
  Country: CA (occurrence: CA)
  Receive Date: 20180322
  Receipt Date: 20180322
  Transmission Date: 20180509
  Serious: Yes (Disabling)
  Sender: FDA-Public Use
  Company Number: CA-BAYER-2018-051684

PATIENT
  Age: 48 Year
  Sex: Female
  Weight: 94.34 kg

DRUGS (2)
  1. MIRENA [Suspect]
     Active Substance: LEVONORGESTREL
     Indication: CONTRACEPTION
     Dosage: 20 MCG/24HR, CONT
     Route: 015
  2. MIRENA [Suspect]
     Active Substance: LEVONORGESTREL
     Indication: CONTRACEPTION

REACTIONS (7)
  - Menorrhagia [Unknown]
  - Anger [Unknown]
  - Fatigue [Unknown]
  - Hyperhidrosis [Unknown]
  - Amnesia [Unknown]
  - Disorientation [Unknown]
  - Depression [Unknown]
